FAERS Safety Report 8089013-9 (Version None)
Quarter: 2012Q1

REPORT INFORMATION
  Report Type: 
  Country: None (occurrence: None)
  Receive Date: 20120128
  Receipt Date: 20110630
  Transmission Date: 20120608
  Serious: Yes (Hospitalization)
  Sender: FDA-Public Use
  Company Number: PR-ABBOTT-11P-131-0835583-00

PATIENT
  Sex: Female

DRUGS (6)
  1. NABUMETONE [Concomitant]
     Indication: HYPERTENSION
     Dosage: AS INDICATED
     Route: 048
  2. ENALAPRIL [Concomitant]
     Route: 048
  3. SYNTHROID [Concomitant]
     Indication: HYPERTHYROIDISM
     Route: 048
  4. HUMIRA [Suspect]
     Indication: RHEUMATOID ARTHRITIS
     Route: 058
     Dates: start: 20110524
  5. ENALAPRIL MALEATE [Suspect]
     Indication: HYPERTENSION
     Route: 048
  6. TRAMADOL HCL [Concomitant]
     Indication: PAIN
     Dosage: AS INDICATED
     Route: 048

REACTIONS (2)
  - COUGH [None]
  - BRONCHITIS [None]
